FAERS Safety Report 8393837-8 (Version None)
Quarter: 2012Q2

REPORT INFORMATION
  Report Type: 
  Country: None (occurrence: None)
  Receive Date: 20120530
  Receipt Date: 20120525
  Transmission Date: 20120825
  Serious: No
  Sender: FDA-Public Use
  Company Number: US-PFIZER INC-2012127103

PATIENT
  Sex: Female

DRUGS (1)
  1. SUTENT [Suspect]
     Dosage: 50 MG, CYCLIC, (DAILY)

REACTIONS (3)
  - HYPERKERATOSIS [None]
  - PAIN IN EXTREMITY [None]
  - STOMATITIS [None]
